FAERS Safety Report 14918684 (Version 1)
Quarter: 2018Q2

REPORT INFORMATION
  Report Type: Spontaneous
  Country: US (occurrence: US)
  Receive Date: 20180521
  Receipt Date: 20180521
  Transmission Date: 20180711
  Serious: No
  Sender: FDA-Public Use
  Company Number: US-PFIZER INC-2018205421

PATIENT
  Age: 33 Year
  Sex: Male

DRUGS (1)
  1. DILANTIN [Suspect]
     Active Substance: PHENYTOIN
     Dosage: UNK (STARTED ON DILANTIN FOR 2-3 WEEKS)

REACTIONS (2)
  - Drug ineffective [Unknown]
  - Feeling abnormal [Unknown]
